FAERS Safety Report 5825422-3 (Version None)
Quarter: 2008Q3

REPORT INFORMATION
  Report Type: 
  Country: None (occurrence: None)
  Receive Date: 20080729
  Receipt Date: 20071024
  Transmission Date: 20090109
  Serious: No
  Sender: FDA-Public Use
  Company Number: US-BAYER-200713459BCC

PATIENT
  Age: 40 Year
  Sex: Female
  Weight: 54 kg

DRUGS (2)
  1. ALEVE (CAPLET) [Suspect]
     Indication: HEADACHE
     Dosage: TOTAL DAILY DOSE: 220 MG  UNIT DOSE: 220 MG
     Route: 048
     Dates: start: 20071022
  2. CAPPUCHINO [Suspect]

REACTIONS (2)
  - DYSPEPSIA [None]
  - THROAT IRRITATION [None]
